FAERS Safety Report 8087335-9 (Version None)
Quarter: 2012Q1

REPORT INFORMATION
  Report Type: 
  Country: None (occurrence: None)
  Receive Date: 20120128
  Receipt Date: 20110427
  Transmission Date: 20120608
  Serious: No
  Sender: FDA-Public Use
  Company Number: US-ABBOTT-11P-163-0722202-00

PATIENT
  Age: 22 Year
  Sex: Male

DRUGS (2)
  1. ENALAPRIL [Concomitant]
     Indication: PRODUCT USED FOR UNKNOWN INDICATION
     Dosage: ONCE DAILY
  2. HUMIRA [Suspect]
     Indication: PSORIASIS
     Dates: start: 20110405

REACTIONS (1)
  - INJECTION SITE HAEMORRHAGE [None]
